FAERS Safety Report 7730409-X (Version None)
Quarter: 2011Q3

REPORT INFORMATION
  Report Type: 
  Country: None (occurrence: None)
  Receive Date: 20110822
  Receipt Date: 20110816
  Transmission Date: 20111222
  Serious: Yes (Other)
  Sender: FDA-Public Use
  Company Number: 2011028075

PATIENT
  Age: 55 Year
  Sex: Female
  Weight: 87.9978 kg

DRUGS (23)
  1. HIZENTRA [Suspect]
  2. HIZENTRA [Suspect]
  3. HIZENTRA [Suspect]
  4. NORFLEX [Concomitant]
  5. HIZENTRA [Suspect]
  6. TRIAZOLAM [Concomitant]
  7. PRIMIDONE [Concomitant]
  8. SYNTHROID [Concomitant]
  9. ZYRTEC [Concomitant]
  10. PERCOCET [Concomitant]
  11. HIZENTRA [Suspect]
  12. ALDARA [Concomitant]
  13. PREVACID [Concomitant]
  14. ONDANSETRON HCL (ONDANSETRON) [Concomitant]
  15. ZANTAC [Concomitant]
  16. HIZENTRA [Suspect]
     Indication: IMMUNODEFICIENCY COMMON VARIABLE
     Dosage: SEE IMAGE
     Route: 058
     Dates: start: 20100826
  17. HIZENTRA [Suspect]
     Indication: IMMUNODEFICIENCY COMMON VARIABLE
     Dosage: SEE IMAGE
     Route: 058
     Dates: start: 20110701, end: 20110701
  18. HIZENTRA [Suspect]
     Indication: IMMUNODEFICIENCY COMMON VARIABLE
     Dosage: SEE IMAGE
     Route: 058
     Dates: start: 20110504
  19. HIZENTRA [Suspect]
     Indication: IMMUNODEFICIENCY COMMON VARIABLE
     Dosage: SEE IMAGE
     Route: 058
     Dates: start: 20110301
  20. HIZENTRA [Suspect]
     Indication: IMMUNODEFICIENCY COMMON VARIABLE
     Dosage: SEE IMAGE
     Route: 058
     Dates: start: 20110504
  21. HIZENTRA [Suspect]
     Indication: IMMUNODEFICIENCY COMMON VARIABLE
     Dosage: SEE IMAGE
     Route: 058
     Dates: start: 20110301
  22. HIZENTRA [Suspect]
     Indication: IMMUNODEFICIENCY COMMON VARIABLE
     Dosage: SEE IMAGE
     Route: 058
     Dates: start: 20110701, end: 20110701
  23. L LYSINE (ACETYLLEUCINE LYSINE) [Concomitant]

REACTIONS (4)
  - SINUSITIS [None]
  - UPPER RESPIRATORY TRACT INFECTION [None]
  - CANDIDIASIS [None]
  - EAR INFECTION [None]
